FAERS Safety Report 5118152-7 (Version None)
Quarter: 2006Q4

REPORT INFORMATION
  Report Type: 
  Country: None (occurrence: None)
  Receive Date: 20061002
  Receipt Date: 20060921
  Transmission Date: 20070319
  Serious: Yes (Hospitalization)
  Sender: FDA-Public Use
  Company Number: DE-JNJFOC-20060905663

PATIENT
  Age: 52 Year
  Sex: Female

DRUGS (4)
  1. RISPERDAL [Suspect]
     Indication: ABNORMAL BEHAVIOUR
     Route: 048
  2. MELPERON [Suspect]
     Indication: ABNORMAL BEHAVIOUR
     Route: 048
  3. EBIXA [Concomitant]
     Route: 048
  4. ARICEPT [Concomitant]
     Route: 048

REACTIONS (2)
  - EXTRAPYRAMIDAL DISORDER [None]
  - PLEUROTHOTONUS [None]
